FAERS Safety Report 16008033 (Version 1)
Quarter: 2019Q1

REPORT INFORMATION
  Report Type: Spontaneous
  Country: CH (occurrence: CH)
  Receive Date: 20190226
  Receipt Date: 20190226
  Transmission Date: 20190418
  Serious: Yes (Other)
  Sender: FDA-Public Use
  Company Number: CH-ASTRAZENECA-2019SE28918

PATIENT
  Age: 63 Year
  Sex: Male
  Weight: 80 kg

DRUGS (2)
  1. TOREM [Concomitant]
     Active Substance: TORSEMIDE
     Dosage: DAILY
     Dates: start: 20180715, end: 20180731
  2. SEROQUEL [Suspect]
     Active Substance: QUETIAPINE FUMARATE
     Route: 048
     Dates: start: 20180717, end: 20180731

REACTIONS (10)
  - Dry mouth [Unknown]
  - Vomiting [Unknown]
  - Hallucination [Unknown]
  - Aggression [Unknown]
  - Pyrexia [Unknown]
  - Syncope [Unknown]
  - Agitation [Unknown]
  - Anticholinergic syndrome [Unknown]
  - Panic attack [Unknown]
  - Dizziness postural [Unknown]

NARRATIVE: CASE EVENT DATE: 20180721
